FAERS Safety Report 13834474 (Version 1)
Quarter: 2017Q3

REPORT INFORMATION
  Report Type: Report from Study
  Country: JP (occurrence: JP)
  Receive Date: 20170804
  Receipt Date: 20170804
  Transmission Date: 20171127
  Serious: Yes (Other)
  Sender: FDA-Public Use
  Company Number: JP-AMGEN-JPNNI2017118068

PATIENT
  Age: 46 Year
  Sex: Female
  Weight: 59 kg

DRUGS (19)
  1. ENDOXAN                            /00021101/ [Suspect]
     Active Substance: CYCLOPHOSPHAMIDE
     Dosage: 993.6 MG, UNK
     Route: 041
     Dates: start: 20170410, end: 20170410
  2. NOVAMIN                            /00013301/ [Concomitant]
     Active Substance: PROCHLORPERAZINE
     Dosage: UNK
     Route: 048
  3. LORAZEPAM. [Concomitant]
     Active Substance: LORAZEPAM
     Dosage: UNK
     Route: 048
  4. PEGFILGRASTIM [Suspect]
     Active Substance: PEGFILGRASTIM
     Dosage: 3.6 MG, UNK
     Route: 058
     Dates: start: 20170425, end: 20170425
  5. EPIRUBICIN HYDROCHLORIDE. [Suspect]
     Active Substance: EPIRUBICIN HYDROCHLORIDE
     Indication: BREAST CANCER
     Dosage: 165.6 MG, UNK
     Route: 041
     Dates: start: 20170306, end: 20170306
  6. EPIRUBICIN HYDROCHLORIDE. [Suspect]
     Active Substance: EPIRUBICIN HYDROCHLORIDE
     Dosage: 165.6 MG, UNK
     Route: 041
     Dates: start: 20170410, end: 20170410
  7. PEGFILGRASTIM [Suspect]
     Active Substance: PEGFILGRASTIM
     Indication: COLONY STIMULATING FACTOR PROPHYLAXIS
     Dosage: 3.6 MG, UNK
     Route: 058
     Dates: start: 20170307, end: 20170307
  8. PEGFILGRASTIM [Suspect]
     Active Substance: PEGFILGRASTIM
     Dosage: 3.6 MG, UNK
     Route: 058
     Dates: start: 20170328, end: 20170328
  9. PEGFILGRASTIM [Suspect]
     Active Substance: PEGFILGRASTIM
     Dosage: 3.6 MG, UNK
     Route: 058
     Dates: start: 20170411, end: 20170411
  10. ENDOXAN                            /00021101/ [Suspect]
     Active Substance: CYCLOPHOSPHAMIDE
     Dosage: 993.6 MG, UNK
     Route: 041
     Dates: start: 20170327, end: 20170327
  11. ABRAXANE [Concomitant]
     Active Substance: PACLITAXEL
     Indication: BREAST CANCER
     Dosage: 423 MG, UNK
     Route: 041
     Dates: start: 20170605, end: 20170605
  12. EMEND [Concomitant]
     Active Substance: APREPITANT
     Dosage: UNK
     Route: 048
  13. PEGFILGRASTIM [Suspect]
     Active Substance: PEGFILGRASTIM
     Dosage: 3.6 MG, UNK
     Route: 058
     Dates: start: 20170606, end: 20170606
  14. EPIRUBICIN HYDROCHLORIDE. [Suspect]
     Active Substance: EPIRUBICIN HYDROCHLORIDE
     Dosage: 165.6 MG, UNK
     Route: 041
     Dates: start: 20170327, end: 20170327
  15. ENDOXAN                            /00021101/ [Suspect]
     Active Substance: CYCLOPHOSPHAMIDE
     Dosage: 993.6 MG, UNK
     Route: 041
     Dates: start: 20170424, end: 20170424
  16. ENDOXAN                            /00021101/ [Suspect]
     Active Substance: CYCLOPHOSPHAMIDE
     Indication: BREAST CANCER
     Dosage: 993.6 MG, UNK
     Route: 041
     Dates: start: 20170306, end: 20170306
  17. MARZULENE                          /00317302/ [Concomitant]
     Dosage: UNK
     Route: 048
  18. EPIRUBICIN HYDROCHLORIDE. [Suspect]
     Active Substance: EPIRUBICIN HYDROCHLORIDE
     Dosage: 165.6 MG, UNK
     Route: 041
     Dates: start: 20170424, end: 20170424
  19. DECADRON [Concomitant]
     Active Substance: DEXAMETHASONE
     Dosage: UNK
     Route: 048

REACTIONS (2)
  - Constipation [Not Recovered/Not Resolved]
  - Chemotherapy [Unknown]

NARRATIVE: CASE EVENT DATE: 20170313
